FAERS Safety Report 5643244-3 (Version None)
Quarter: 2008Q1

REPORT INFORMATION
  Report Type: 
  Country: None (occurrence: None)
  Receive Date: 20080228
  Receipt Date: 20080219
  Transmission Date: 20080703
  Serious: Yes (Life-Threatening, Hospitalization, Other)
  Sender: FDA-Public Use
  Company Number: US-PURDUE-USA_2008_0031692

PATIENT
  Age: 61 Year
  Sex: Female

DRUGS (4)
  1. DILAUDID TABLET [Suspect]
     Indication: BACK PAIN
     Dates: start: 20070423
  2. ASPIRIN [Concomitant]
     Dates: start: 20010101
  3. PREDNISONE TAB [Concomitant]
  4. WARFARIN SODIUM [Concomitant]

REACTIONS (5)
  - ARRHYTHMIA [None]
  - ASTHENIA [None]
  - CARDIAC ARREST [None]
  - CEREBROVASCULAR ACCIDENT [None]
  - COLLAPSE OF LUNG [None]
